FAERS Safety Report 16609512 (Version 1)
Quarter: 2019Q3

REPORT INFORMATION
  Report Type: Spontaneous
  Country: US (occurrence: US)
  Receive Date: 20190721
  Receipt Date: 20190721
  Transmission Date: 20191004
  Serious: No
  Sender: FDA-Public Use
  Company Number: None

PATIENT
  Age: 34 Year
  Sex: Female
  Weight: 45.45 kg

DRUGS (1)
  1. VYVANSE [Suspect]
     Active Substance: LISDEXAMFETAMINE DIMESYLATE
     Indication: ATTENTION DEFICIT/HYPERACTIVITY DISORDER
     Dosage: ?          QUANTITY:1 CAPSULE(S);?
     Route: 048
     Dates: start: 20190710

REACTIONS (10)
  - Feeling abnormal [None]
  - Weight decreased [None]
  - Frustration tolerance decreased [None]
  - Abdominal pain upper [None]
  - Product physical issue [None]
  - Decreased appetite [None]
  - Taste disorder [None]
  - Drug ineffective [None]
  - Product quality issue [None]
  - Nausea [None]

NARRATIVE: CASE EVENT DATE: 20190710
